FAERS Safety Report 4308917-3 (Version None)
Quarter: 2004Q1

REPORT INFORMATION
  Report Type: 
  Country: None (occurrence: None)
  Receive Date: 20040227
  Receipt Date: 20040219
  Transmission Date: 20041129
  Serious: Yes (Hospitalization)
  Sender: FDA-Public Use
  Company Number: DE-JNJFOC-20040204879

PATIENT
  Age: 40 Year
  Sex: Male

DRUGS (22)
  1. INFLIXIMAB, RECOMBINANT - BLINDED [Suspect]
     Indication: ANKYLOSING SPONDYLITIS
     Dosage: INTRAVENOUS
     Route: 042
     Dates: start: 20030312
  2. INFLIXIMAB, RECOMBINANT - BLINDED [Suspect]
     Indication: ANKYLOSING SPONDYLITIS
     Dosage: INTRAVENOUS
     Route: 042
     Dates: start: 20030325
  3. INFLIXIMAB, RECOMBINANT - BLINDED [Suspect]
     Indication: ANKYLOSING SPONDYLITIS
     Dosage: INTRAVENOUS
     Route: 042
     Dates: start: 20030422
  4. INFLIXIMAB, RECOMBINANT - BLINDED [Suspect]
     Indication: ANKYLOSING SPONDYLITIS
     Dosage: INTRAVENOUS
     Route: 042
     Dates: start: 20030603
  5. INFLIXIMAB, RECOMBINANT - BLINDED [Suspect]
     Indication: ANKYLOSING SPONDYLITIS
     Dosage: INTRAVENOUS
     Route: 042
     Dates: start: 20030715
  6. INFLIXIMAB, RECOMBINANT - BLINDED [Suspect]
     Indication: ANKYLOSING SPONDYLITIS
     Dosage: INTRAVENOUS
     Route: 042
     Dates: start: 20030826
  7. INFLIXIMAB, RECOMBINANT - BLINDED [Suspect]
     Indication: ANKYLOSING SPONDYLITIS
     Dosage: INTRAVENOUS
     Route: 042
     Dates: start: 20030909
  8. INFLIXIMAB, RECOMBINANT - BLINDED [Suspect]
     Indication: ANKYLOSING SPONDYLITIS
     Dosage: INTRAVENOUS
     Route: 042
     Dates: start: 20031007
  9. INFLIXIMAB, RECOMBINANT - BLINDED [Suspect]
     Indication: ANKYLOSING SPONDYLITIS
     Dosage: INTRAVENOUS
     Route: 042
     Dates: start: 20031118
  10. INFLIXIMAB, RECOMBINANT - BLINDED [Suspect]
     Indication: ANKYLOSING SPONDYLITIS
     Dosage: INTRAVENOUS
     Route: 042
     Dates: start: 20040217
  11. PLACEBO (PLACEBO) LYOPHILIZED POWDER [Suspect]
     Indication: ANKYLOSING SPONDYLITIS
     Dosage: INTRAVENOUS
     Route: 042
     Dates: start: 20030312
  12. PLACEBO (PLACEBO) LYOPHILIZED POWDER [Suspect]
     Indication: ANKYLOSING SPONDYLITIS
     Dosage: INTRAVENOUS
     Route: 042
     Dates: start: 20030325
  13. PLACEBO (PLACEBO) LYOPHILIZED POWDER [Suspect]
     Indication: ANKYLOSING SPONDYLITIS
     Dosage: INTRAVENOUS
     Route: 042
     Dates: start: 20030422
  14. PLACEBO (PLACEBO) LYOPHILIZED POWDER [Suspect]
     Indication: ANKYLOSING SPONDYLITIS
     Dosage: INTRAVENOUS
     Route: 042
     Dates: start: 20030603
  15. PLACEBO (PLACEBO) LYOPHILIZED POWDER [Suspect]
     Indication: ANKYLOSING SPONDYLITIS
     Dosage: INTRAVENOUS
     Route: 042
     Dates: start: 20030715
  16. PLACEBO (PLACEBO) LYOPHILIZED POWDER [Suspect]
     Indication: ANKYLOSING SPONDYLITIS
     Dosage: INTRAVENOUS
     Route: 042
     Dates: start: 20030826
  17. PLACEBO (PLACEBO) LYOPHILIZED POWDER [Suspect]
     Indication: ANKYLOSING SPONDYLITIS
     Dosage: INTRAVENOUS
     Route: 042
     Dates: start: 20030909
  18. PLACEBO (PLACEBO) LYOPHILIZED POWDER [Suspect]
     Indication: ANKYLOSING SPONDYLITIS
     Dosage: INTRAVENOUS
     Route: 042
     Dates: start: 20031007
  19. PLACEBO (PLACEBO) LYOPHILIZED POWDER [Suspect]
     Indication: ANKYLOSING SPONDYLITIS
     Dosage: INTRAVENOUS
     Route: 042
     Dates: start: 20031118
  20. PLACEBO (PLACEBO) LYOPHILIZED POWDER [Suspect]
     Indication: ANKYLOSING SPONDYLITIS
     Dosage: INTRAVENOUS
     Route: 042
     Dates: start: 20040115
  21. PLACEBO (PLACEBO) LYOPHILIZED POWDER [Suspect]
     Indication: ANKYLOSING SPONDYLITIS
     Dosage: INTRAVENOUS
     Route: 042
     Dates: start: 20040217
  22. DICLOFENAC SODIUM [Concomitant]

REACTIONS (1)
  - BURSITIS [None]
